FAERS Safety Report 12231419 (Version 2)
Quarter: 2016Q2

REPORT INFORMATION
  Report Type: Spontaneous
  Country: US (occurrence: US)
  Receive Date: 20160401
  Receipt Date: 20160425
  Transmission Date: 20160815
  Serious: No
  Sender: FDA-Public Use
  Company Number: US-PFIZER INC-2016171866

PATIENT
  Age: 68 Year
  Sex: Female

DRUGS (7)
  1. LYRICA [Interacting]
     Active Substance: PREGABALIN
     Indication: BACK PAIN
  2. LYRICA [Interacting]
     Active Substance: PREGABALIN
     Indication: HERPES ZOSTER
  3. LYRICA [Interacting]
     Active Substance: PREGABALIN
     Indication: TRIGEMINAL NEURALGIA
  4. LYRICA [Interacting]
     Active Substance: PREGABALIN
     Indication: PROCEDURAL PAIN
  5. TRAZODONE [Interacting]
     Active Substance: TRAZODONE HYDROCHLORIDE
     Indication: SLEEP DISORDER
     Dosage: UNK
     Dates: start: 201603
  6. LYRICA [Suspect]
     Active Substance: PREGABALIN
     Indication: PAIN
     Dosage: 50 MG, 2X/DAY
     Route: 048
     Dates: start: 20160322
  7. TRAMADOL. [Interacting]
     Active Substance: TRAMADOL
     Indication: PAIN
     Dosage: UNK
     Dates: start: 2014

REACTIONS (10)
  - Glossodynia [Unknown]
  - Vision blurred [Unknown]
  - Diplopia [Unknown]
  - Dizziness [Not Recovered/Not Resolved]
  - Nervousness [Not Recovered/Not Resolved]
  - Feeling abnormal [Unknown]
  - Impaired driving ability [Unknown]
  - Oral discomfort [Unknown]
  - Weight increased [Unknown]
  - Drug interaction [Unknown]

NARRATIVE: CASE EVENT DATE: 20160322
